FAERS Safety Report 9958533 (Version 4)
Quarter: 2015Q2

REPORT INFORMATION
  Report Type: Spontaneous
  Country: JP (occurrence: JP)
  Receive Date: 20140305
  Receipt Date: 20150513
  Transmission Date: 20150821
  Serious: Yes (Death, Life-Threatening, Hospitalization, Other)
  Sender: FDA-Public Use
  Company Number: JP-BRISTOL-MYERS SQUIBB COMPANY-20352423

PATIENT
  Age: 82 Year
  Sex: Female
  Weight: 40 kg

DRUGS (7)
  1. ERBITUX [Suspect]
     Active Substance: CETUXIMAB
     Indication: COLON CANCER
     Dosage: 400 MG, QD
     Route: 041
     Dates: start: 20140213, end: 20140213
  2. IRINOTECAN HCL [Concomitant]
     Active Substance: IRINOTECAN HYDROCHLORIDE
     Indication: COLON CANCER
     Dosage: INJECTION  LAST DOSE:13FEB14
     Route: 041
     Dates: start: 201401, end: 201402
  3. ALOXI [Concomitant]
     Active Substance: PALONOSETRON HYDROCHLORIDE
     Indication: COLON CANCER
     Dosage: LAST DOSE:13FEB14
     Route: 041
     Dates: start: 20140213, end: 20140213
  4. DEXART [Concomitant]
     Active Substance: DEXAMETHASONE SODIUM PHOSPHATE
     Indication: COLON CANCER
     Dosage: LAST DOSE:13FEB14
     Route: 041
     Dates: start: 20140213, end: 20140213
  5. RANITIDINE [Concomitant]
     Active Substance: RANITIDINE\RANITIDINE HYDROCHLORIDE
     Indication: COLON CANCER
     Dosage: LAST DOSE:13FEB14
     Route: 042
     Dates: start: 20140213, end: 20140213
  6. CALCIUM FOLINATE [Concomitant]
     Active Substance: LEUCOVORIN CALCIUM
     Indication: COLON CANCER
     Dosage: UNK
     Route: 041
     Dates: start: 201401, end: 201401
  7. 5-FU                               /00098801/ [Concomitant]
     Active Substance: FLUOROURACIL
     Indication: COLON CANCER
     Dosage: (1000 MG,L IN 1 D),INTRAVENOUS DRIP   LAST DOSE:13FEB14
     Route: 040
     Dates: start: 201401, end: 20140213

REACTIONS (3)
  - Pneumonia aspiration [Fatal]
  - Intestinal obstruction [Recovering/Resolving]
  - Tumour lysis syndrome [Recovering/Resolving]

NARRATIVE: CASE EVENT DATE: 20130215
